FAERS Safety Report 23079163 (Version 2)
Quarter: 2023Q4

REPORT INFORMATION
  Report Type: Report from Study
  Country: CN (occurrence: CN)
  Receive Date: 20231018
  Receipt Date: 20231129
  Transmission Date: 20240110
  Serious: Yes (Hospitalization)
  Sender: FDA-Public Use
  Company Number: CN-SEATTLE GENETICS-2023SGN11166

PATIENT
  Age: 52 Year
  Sex: Female
  Weight: 69.5 kg

DRUGS (5)
  1. TISOTUMAB VEDOTIN [Suspect]
     Active Substance: TISOTUMAB VEDOTIN
     Indication: Cervix carcinoma
     Dosage: 2 MG/KG ON DAY 1 OF EACH 21 DAY CYCLE
     Route: 042
     Dates: start: 20230626
  2. GLYCYRRHIZA GLABRA\HERBALS [Concomitant]
     Active Substance: GLYCYRRHIZA GLABRA\HERBALS
     Indication: Hepatic function abnormal
     Dosage: UNK, TID
     Route: 048
     Dates: start: 20230719, end: 20230810
  3. GLYCYRRHIZA GLABRA\HERBALS [Concomitant]
     Active Substance: GLYCYRRHIZA GLABRA\HERBALS
     Dosage: 120 MG
     Route: 042
     Dates: start: 20230811, end: 20230925
  4. GLUTATHIONE [Concomitant]
     Active Substance: GLUTATHIONE
     Indication: Hepatic function abnormal
     Dosage: 1.2 G, QD
     Route: 042
     Dates: start: 20230811, end: 20230814
  5. GLUTATHIONE [Concomitant]
     Active Substance: GLUTATHIONE
     Dosage: 1.8 UNK
     Route: 042
     Dates: start: 20230816, end: 20231001

REACTIONS (1)
  - Hepatic function abnormal [Recovering/Resolving]

NARRATIVE: CASE EVENT DATE: 20231010
